FAERS Safety Report 6268686-7 (Version None)
Quarter: 2009Q3

REPORT INFORMATION
  Report Type: 
  Country: None (occurrence: None)
  Receive Date: 20090713
  Receipt Date: 20090713
  Transmission Date: 20100115
  Serious: No
  Sender: FDA-Public Use
  Company Number: None

PATIENT
  Age: 55 Year
  Sex: Female
  Weight: 57.6068 kg

DRUGS (1)
  1. ZICAM COLD REMEDY NASAL SWABS [Suspect]
     Indication: SINUS DISORDER
     Dosage: SWABS FOUR DAYS
     Dates: start: 20090501, end: 20090504

REACTIONS (2)
  - AGEUSIA [None]
  - ANOSMIA [None]
